FAERS Safety Report 25517466 (Version 3)
Quarter: 2025Q3

REPORT INFORMATION
  Report Type: Report from Study
  Country: US (occurrence: US)
  Receive Date: 20250704
  Receipt Date: 20250713
  Transmission Date: 20251020
  Serious: No
  Sender: SANDOZ
  Company Number: US-SANDOZ-SDZ2025US046025

PATIENT
  Age: 35 Year
  Sex: Female

DRUGS (1)
  1. GLATOPA [Suspect]
     Active Substance: GLATIRAMER ACETATE
     Indication: Multiple sclerosis
     Dosage: 40 MG, Q48H
     Route: 058
     Dates: start: 20250630

REACTIONS (4)
  - Injection site swelling [Not Recovered/Not Resolved]
  - Injection site erythema [Recovering/Resolving]
  - Wrong technique in device usage process [Unknown]
  - Product knowledge deficit [Unknown]

NARRATIVE: CASE EVENT DATE: 20250630
